FAERS Safety Report 6582366-X (Version None)
Quarter: 2010Q1

REPORT INFORMATION
  Report Type: 
  Country: None (occurrence: None)
  Receive Date: 20100216
  Receipt Date: 20100205
  Transmission Date: 20100710
  Serious: Yes (Hospitalization, Other)
  Sender: FDA-Public Use
  Company Number: BE-PERRIGO-10BE007028

PATIENT
  Age: 60 Year
  Sex: Female
  Weight: 90 kg

DRUGS (9)
  1. ACETAMINOPHEN SLOW RELEASE [Suspect]
     Indication: SPINAL LAMINECTOMY
     Dosage: 1 G, QID FOR 10 DAYS
     Route: 048
  2. VALPROIC ACID [Concomitant]
     Indication: CONVULSION
     Dosage: UNKNOWN
     Route: 042
  3. CARBAMAZEPINE A [Concomitant]
     Indication: CONVULSION
     Dosage: UNKNOWN
     Route: 044
  4. PROPOFOL [Concomitant]
     Indication: ANAESTHESIA
  5. SEVOFLURANE [Concomitant]
     Indication: ANAESTHESIA
  6. SUFENTANIL [Concomitant]
     Indication: ANAESTHESIA
  7. ROCURONIUM [Concomitant]
     Indication: ANAESTHESIA
  8. DICLOFENAC [Concomitant]
     Indication: ANALGESIC THERAPY
  9. MORPHINE [Concomitant]
     Indication: ANALGESIC THERAPY
     Dosage: 48 HOURS

REACTIONS (6)
  - ACUTE HEPATIC FAILURE [None]
  - COAGULOPATHY [None]
  - CYTOLYTIC HEPATITIS [None]
  - ENCEPHALOPATHY [None]
  - RENAL FAILURE [None]
  - THROMBOCYTOPENIA [None]
